FAERS Safety Report 6760378-0 (Version None)
Quarter: 2010Q2

REPORT INFORMATION
  Report Type: 
  Country: None (occurrence: None)
  Receive Date: 20100608
  Receipt Date: 20100602
  Transmission Date: 20101027
  Serious: Yes (Other)
  Sender: FDA-Public Use
  Company Number: GB-ASTRAZENECA-2010SE25394

PATIENT
  Age: 60 Year
  Sex: Male

DRUGS (1)
  1. ATENOLOL [Suspect]

REACTIONS (1)
  - ABDOMINAL DISCOMFORT [None]
